FAERS Safety Report 16895962 (Version 1)
Quarter: 2019Q4

REPORT INFORMATION
  Report Type: Spontaneous
  Country: US (occurrence: US)
  Receive Date: 20191008
  Receipt Date: 20191008
  Transmission Date: 20200122
  Serious: Yes (Other)
  Sender: FDA-Public Use
  Company Number: US-LEXICON PHARMACEUTICALS, INC-19-1606-00943

PATIENT
  Sex: Female

DRUGS (20)
  1. DULOXETINE. [Concomitant]
     Active Substance: DULOXETINE
  2. SALINE NASAL SPRAY [Concomitant]
     Active Substance: SODIUM CHLORIDE
  3. FUROSEMIDE. [Concomitant]
     Active Substance: FUROSEMIDE
  4. VITAMIN B COMPLEX [Concomitant]
     Active Substance: CYANOCOBALAMIN\DEXPANTHENOL\NIACINAMIDE\PYRIDOXINE HYDROCHLORIDE\RIBOFLAVIN 5^-PHOSPHATE SODIUM\THIAMINE HYDROCHLORIDE\VITAMIN B COMPLEX
  5. ZENPEP [Concomitant]
     Active Substance: PANCRELIPASE AMYLASE\PANCRELIPASE LIPASE\PANCRELIPASE PROTEASE
  6. CHOLESTYRAMINE. [Concomitant]
     Active Substance: CHOLESTYRAMINE
  7. XERMELO [Suspect]
     Active Substance: TELOTRISTAT ETHYL
     Indication: CARCINOID SYNDROME
     Route: 048
     Dates: start: 20180105
  8. FLUTICASONE. [Concomitant]
     Active Substance: FLUTICASONE
  9. VITAMIN B12 [Concomitant]
     Active Substance: CYANOCOBALAMIN
  10. GABAPENTIN. [Concomitant]
     Active Substance: GABAPENTIN
  11. LIDOCAINE. [Concomitant]
     Active Substance: LIDOCAINE
  12. PROBIOTIC [Concomitant]
     Active Substance: PROBIOTICS NOS
  13. POTASSIUM [Concomitant]
     Active Substance: POTASSIUM
  14. FAMOTIDINE. [Concomitant]
     Active Substance: FAMOTIDINE
  15. SOMATULINE [Concomitant]
     Active Substance: LANREOTIDE ACETATE
  16. LOSARTAN. [Concomitant]
     Active Substance: LOSARTAN
  17. CALCIUM [Concomitant]
     Active Substance: CALCIUM
  18. CARBINOXAMINE [Concomitant]
     Active Substance: CARBINOXAMINE
  19. DILTIAZEM. [Concomitant]
     Active Substance: DILTIAZEM
  20. MULTIVITAMIN [Concomitant]
     Active Substance: VITAMINS

REACTIONS (1)
  - Disease progression [Unknown]
